FAERS Safety Report 5460359-3 (Version None)
Quarter: 2007Q3

REPORT INFORMATION
  Report Type: 
  Country: None (occurrence: None)
  Receive Date: 20070919
  Receipt Date: 20070702
  Transmission Date: 20080115
  Serious: No
  Sender: FDA-Public Use
  Company Number: US-ASTRAZENECA-2007UW15963

PATIENT
  Age: 19161 Day
  Sex: Female
  Weight: 85 kg

DRUGS (6)
  1. SEROQUEL [Suspect]
     Indication: BIPOLAR DISORDER
     Dosage: 25 MG - 200 MG
     Route: 048
     Dates: start: 20031104, end: 20061116
  2. SEROQUEL [Suspect]
     Indication: DEPRESSION
     Dosage: 25 MG - 200 MG
     Route: 048
     Dates: start: 20031104, end: 20061116
  3. ABILIFY [Concomitant]
     Dates: start: 20060101, end: 20060101
  4. ZYPREXA [Concomitant]
     Dates: start: 20020101, end: 20030101
  5. PAXIL [Concomitant]
     Dates: start: 19980101
  6. LITHIUM [Concomitant]
     Dates: start: 20020101

REACTIONS (3)
  - DERMAL CYST [None]
  - TENDERNESS [None]
  - TYPE 2 DIABETES MELLITUS [None]
